FAERS Safety Report 6570856-5 (Version None)
Quarter: 2010Q1

REPORT INFORMATION
  Report Type: 
  Country: None (occurrence: None)
  Receive Date: 20100204
  Receipt Date: 20100127
  Transmission Date: 20100710
  Serious: Yes (Death)
  Sender: FDA-Public Use
  Company Number: JP-ROCHE-679671

PATIENT
  Sex: Male
  Weight: 44 kg

DRUGS (11)
  1. AVASTIN [Suspect]
     Indication: COLON CANCER METASTATIC
     Route: 041
     Dates: start: 20091014, end: 20100106
  2. LEVOFOLINATE [Concomitant]
     Route: 041
     Dates: start: 20090916, end: 20100106
  3. 5-FU [Concomitant]
     Route: 040
     Dates: start: 20090916, end: 20100106
  4. 5-FU [Concomitant]
     Route: 041
     Dates: start: 20090916, end: 20100101
  5. TOPOTECAN [Concomitant]
     Dosage: DRUG REPORTED AS: TOPOTECIN(IRINOTECAN HYDROCHLORIDE)
     Route: 041
     Dates: start: 20090916, end: 20100106
  6. DECADRON [Concomitant]
     Dosage: DRUG AS: DECADRON(DEXAMETHASONE SODIUM PHOSPHATE) ROUTE: INTRAVENOUS (NOT OTHERWISE SPECIFIED)
     Route: 042
     Dates: start: 20090916, end: 20100106
  7. GRANISETRON [Concomitant]
     Dosage: DRUG REPORTED AS: GRANISETRON(GRANISETRON HYDROCHLORIDE
     Route: 042
     Dates: start: 20090916, end: 20100106
  8. POLARAMINE [Concomitant]
     Dosage: DRUG: POLARAMINE(CHLORPHENIRAMINE MALEATE) ROUTE: INTRAVENOUS (NOT OTHERWISE SPECIFIED)
     Route: 042
     Dates: start: 20090916, end: 20100106
  9. LOXOPROFEN [Concomitant]
     Dosage: DRUG REPORTED AS: LOBU(LOXOPROFEN SODIUM)  NOTE: WHEN IT IS PAINFUL
     Route: 048
     Dates: start: 20091028, end: 20091209
  10. PERAPRIN [Concomitant]
     Route: 048
     Dates: start: 20091030, end: 20091209
  11. RINDERON [Concomitant]
     Dosage: DRUG REPORTED AS: RINDERON(BETAMETHASONE)
     Route: 048
     Dates: start: 20091030, end: 20091209

REACTIONS (1)
  - CEREBRAL ARTERY EMBOLISM [None]
